FAERS Safety Report 6213954-8 (Version None)
Quarter: 2009Q2

REPORT INFORMATION
  Report Type: 
  Country: None (occurrence: None)
  Receive Date: 20090604
  Receipt Date: 20090529
  Transmission Date: 20091009
  Serious: Yes (Other)
  Sender: FDA-Public Use
  Company Number: US-JNJFOC-20090600508

PATIENT
  Sex: Male

DRUGS (2)
  1. DURAGESIC-100 [Suspect]
     Route: 062
  2. DURAGESIC-100 [Suspect]
     Indication: DRUG USE FOR UNKNOWN INDICATION
     Route: 062

REACTIONS (12)
  - DRUG DOSE OMISSION [None]
  - DYSSTASIA [None]
  - HEADACHE [None]
  - HYPERACUSIS [None]
  - IMMUNOLOGY TEST [None]
  - LYME DISEASE [None]
  - MEMORY IMPAIRMENT [None]
  - MUSCLE ATROPHY [None]
  - MUSCLE FATIGUE [None]
  - PHOTOPHOBIA [None]
  - STRESS [None]
  - WITHDRAWAL SYNDROME [None]
